FAERS Safety Report 5507880-7 (Version None)
Quarter: 2007Q4

REPORT INFORMATION
  Report Type: 
  Country: None (occurrence: None)
  Receive Date: 20071101
  Receipt Date: 20070719
  Transmission Date: 20080405
  Serious: Yes (Other)
  Sender: FDA-Public Use
  Company Number: 159067USA

PATIENT
  Sex: Female

DRUGS (1)
  1. SALBUTAMOL SULFATE INHALATION, 0.09 MG (SALBUTAMOL) [Suspect]
     Indication: ASTHMA
     Dosage: 2 PUFFS FOR CONTROL FOR ASTHMA

REACTIONS (4)
  - ANGIOEDEMA [None]
  - FACE OEDEMA [None]
  - GENERALISED OEDEMA [None]
  - LOCALISED OEDEMA [None]
